FAERS Safety Report 10015925 (Version 2)
Quarter: 2014Q2

REPORT INFORMATION
  Report Type: Spontaneous
  Country: US (occurrence: US)
  Receive Date: 20140317
  Receipt Date: 20140617
  Transmission Date: 20141212
  Serious: Yes (Hospitalization)
  Sender: FDA-Public Use
  Company Number: US-BAYER-2014-040305

PATIENT
  Age: 22 Year
  Sex: Female
  Weight: 97.51 kg

DRUGS (1)
  1. MIRENA [Suspect]
     Indication: CONTRACEPTION
     Dosage: 20 MCG/24HR, CONT
     Route: 015
     Dates: start: 20080501, end: 20130123

REACTIONS (8)
  - Embedded device [None]
  - Scar [None]
  - Pain [None]
  - Injury [None]
  - Procedural pain [None]
  - Anxiety [None]
  - Depression [None]
  - Device issue [None]
